FAERS Safety Report 7516258-6 (Version None)
Quarter: 2011Q2

REPORT INFORMATION
  Report Type: 
  Country: None (occurrence: None)
  Receive Date: 20110601
  Receipt Date: 20110520
  Transmission Date: 20111010
  Serious: Yes (Other)
  Sender: FDA-Public Use
  Company Number: GB-AMGEN-GBRSP2011026966

PATIENT
  Sex: Female

DRUGS (1)
  1. ENBREL [Suspect]
     Indication: PRODUCT USED FOR UNKNOWN INDICATION
     Dosage: 50 MG, WEEKLY

REACTIONS (6)
  - PHOTOSENSITIVITY REACTION [None]
  - LIP SWELLING [None]
  - SKIN REACTION [None]
  - RASH [None]
  - INJECTION SITE REACTION [None]
  - EYE SWELLING [None]
